FAERS Safety Report 17761128 (Version 1)
Quarter: 2020Q2

REPORT INFORMATION
  Report Type: Spontaneous
  Country: SI (occurrence: SI)
  Receive Date: 20200508
  Receipt Date: 20200508
  Transmission Date: 20200714
  Serious: Yes (Other)
  Sender: FDA-Public Use
  Company Number: SI-TEVA-2020-SI-1231758

PATIENT
  Age: 50 Year
  Sex: Male

DRUGS (5)
  1. FRAGMIN [Suspect]
     Active Substance: DALTEPARIN SODIUM
     Indication: THROMBOSIS PROPHYLAXIS
     Dosage: 5000IU; 5000/24 UR
     Route: 058
     Dates: start: 20200412, end: 20200422
  2. DALERON 500 MG [Suspect]
     Active Substance: ACETAMINOPHEN
     Indication: PYREXIA
     Dosage: 500 MG; AS NECESSARY, DOTAL DOSE OF 2 TBL ON 14. AND 15.4.
     Route: 048
     Dates: start: 20200414, end: 20200415
  3. FOLKODIN ALKALOID-INT [Concomitant]
     Indication: COUGH
     Dosage: 10 MG; AS NECESSARY 2CAPS/DAY
     Route: 048
     Dates: start: 20200412, end: 20200420
  4. PANTOPRAZOL TEVA 20 MG [Concomitant]
     Indication: GASTRITIS
     Dosage: 20 MILLIGRAM DAILY;
     Route: 048
     Dates: start: 20200412, end: 20200421
  5. HYDROXYCHLOROQUINE SULPHATE BP 200MG TABLET [Suspect]
     Active Substance: HYDROXYCHLOROQUINE SULFATE
     Indication: CORONAVIRUS INFECTION
     Dosage: 200 MG; 15.4. IN THE EVENING AND 16.4. IN THE MORNING 400 MG, THEN 200 MG/12 H
     Route: 048
     Dates: start: 20200415, end: 20200418

REACTIONS (1)
  - Liver disorder [Recovering/Resolving]

NARRATIVE: CASE EVENT DATE: 20200416
